FAERS Safety Report 9738984 (Version 2)
Quarter: 2014Q4

REPORT INFORMATION
  Report Type: Report from Study
  Country: MX (occurrence: MX)
  Receive Date: 20131209
  Receipt Date: 20141110
  Transmission Date: 20150529
  Serious: Yes (Other)
  Sender: FDA-Public Use
  Company Number: PHHY2013MX142958

PATIENT
  Age: 52 Year
  Sex: Female

DRUGS (3)
  1. ZANIDIP [Concomitant]
     Active Substance: LERCANIDIPINE HYDROCHLORIDE
     Indication: HYPERTENSION
     Dosage: 1 DF (10MG), QHS
     Route: 065
  2. DIOVAN [Suspect]
     Active Substance: VALSARTAN
     Dosage: 160 MG, PRN (WHEN PRESSURE INCREASED)
     Route: 065
  3. DIOVAN [Suspect]
     Active Substance: VALSARTAN
     Indication: HYPERTENSION
     Dosage: 80 MG, QD
     Route: 048

REACTIONS (5)
  - Mood altered [Not Recovered/Not Resolved]
  - Pulmonary fibrosis [Not Recovered/Not Resolved]
  - Tachycardia [Unknown]
  - Stress [Not Recovered/Not Resolved]
  - Hypertension [Not Recovered/Not Resolved]
